FAERS Safety Report 13296955 (Version 2)
Quarter: 2018Q1

REPORT INFORMATION
  Report Type: Spontaneous
  Country: US (occurrence: US)
  Receive Date: 20170306
  Receipt Date: 20180201
  Transmission Date: 20180508
  Serious: No
  Sender: FDA-Public Use
  Company Number: US-TEVA-738197ACC

PATIENT
  Age: 76 Year
  Sex: Female
  Weight: 67 kg

DRUGS (20)
  1. ALLOPURINOL300 MG ORAL TABLET [Concomitant]
     Dosage: 1 DOSAGE FORMS DAILY; REFILL 3; QUANTITY: 90TABLETS, DAYS: 90. TAKE I TABLET DAILY. HOLD
     Dates: start: 20070523
  2. POTASSIUM CHLORIDE ER 10 MEQ ORAL CAPSULE EXTENDED RELEASE [Concomitant]
     Dosage: TAKE I CAPSULE DAILY. DAY: 90, QTY: 90CAPSULES EXTERNDED RELEASE, REFILL 3
     Dates: start: 20070718
  3. VOLTAREN 1PERCENT TRANSDERMAL GEL (DICLOFENAC SODIUM) [Concomitant]
     Dosage: APPLY 4 GRAMS 3 TO 4 TIMES DAILY. DAYS 90, QTY 6X100GM TUBE (5 TUBES), REFIL 4
     Dates: start: 20130125
  4. ATORVASTATIN CALCIUM 80 MG ORAL TABLET [Concomitant]
     Dosage: REFILL 3; QUANTITY: 90TABLETS, DAYS: 90. TAKE I TABLET AT BED TIME
     Dates: start: 20140922
  5. DEXILANT 60 MG ORAL CAPSULE DELAYED RELEASE [Concomitant]
     Dosage: TAKE I CAPSULE BID; DAYS: 90, QTY: 180 CAPSULE DELAYED RELEASE; REFILL: 3
     Dates: start: 20150309
  6. DOXAZOSIN MESYLATE 2 MG ORAL TABLET (CARDUM) [Concomitant]
     Dosage: TAKE I TABLET AT BEDTIME; DAYS: 90, QTY: 90TABLETS, REFILLS: 3
     Dates: start: 20150803
  7. NITROSTAT 0.4 MG SUBLINGUAL TABLET SUBLINGUAL ({NITROGLYCERIN) [Concomitant]
     Dosage: PLACE 1 TABLET AS NEEDED 1 TAB AT ONSET OF CHEST PAIN, CAN REPEAT 5-10MINUTES, MAX 3 IN 30MINS. DAYS
     Dates: start: 20071121
  8. LEVOTHYROXINE SODIUM 50 MCG ORAL TABLET [Concomitant]
     Dosage: TAKE 1.5TABLETDAILY. DAYS: 30, QTY: 45TABLETS, REFILL: 3
     Dates: start: 20160622
  9. SPIRONOLACTONE 25 MG ORAL TABLET [Concomitant]
     Dosage: TAKE I TABLET DAILY. DAYS 90, QTY 90TABLETS, REFILLS 3
     Dates: start: 20080710
  10. WAL-ITIN D 24 HOUR [Suspect]
     Active Substance: LORATADINE\PSEUDOEPHEDRINE SULFATE
     Dosage: DOSE STRENGTH: 10MG/ 240MG; DOSE: 1
     Dates: start: 20170204, end: 20170204
  11. METHENAMINE HIPPURATE I GM ORAL TABLET (HIPREX) [Concomitant]
     Dosage: TAKE I TABLET DAILY IN THE EVENING. DAYS: 90, QTY: 90TABLETS, REFILL: 0.
     Dates: start: 20090610
  12. PROAIR HFA 108 (90 BASE) MCG/ACT INHALATION AEROSOL SOLUTION [Concomitant]
     Dosage: INHALE 2 PUFFS 4 TIMES ADA Y AND AS NEEDED. DAYS 30, QTY 1X8.45GM INHALER, REFILLS 3
     Dates: start: 20100601
  13. WARFARIN SODIUM 2.5 MG ORAL TABLET [Concomitant]
     Dosage: TAKE 1 TABLET DAILY AS DIRECTED. DAYS 30, QTY 30 TABLETS, REFILSS 3
     Dates: start: 20160114
  14. FUROSEMIDE 40 MG ORAL TABLET (LASIX) [Concomitant]
     Dosage: TAKE 2 TABLETS ON M, W,F, AND ONE TABLET ALL OTHER DAYS. DAYS:30, QTY: 45 TABLETS, REFILLS: 3
     Dates: start: 20131212
  15. DILTIAZEM CD 240 MG ORAL CAPSULE EXTENDED RELEASE 24 HOUR [Concomitant]
     Dosage: TAKE I CAPSULE DAILY, DAYS: 90, QTY: 90CAPSULE EXTENDED RELEASE 24HOUR, REFILS 3
     Dates: start: 20160114
  16. LPRATROPIUM-ALBUTEROL 0.5-2.5 (3) MG/3ML INHALATION SOLUTION [Concomitant]
     Dosage: ADMINISTER ONE 3 ML VIAL 4 TIMES DAILY VIA NEBULIZATION; DAYS: 15, QTY: 1X3 ML PLAS CONT (60PLS CONT
     Dates: start: 20150611
  17. ONDANSETRON HCL-4 MG ORAL TABLET [Concomitant]
     Dosage: TAKE I TABLET 3 TIMES DAILY PRN. DAYS: 10, QTY: 30TABLETS, REFILL 0
     Dates: start: 20170112
  18. KETOCONAZOLE 2PERCENT EXTERNAL CREAM [Concomitant]
     Dosage: APPLY TO RASH CORNERS OF MOUTH BID AS NEEDED, DAYS: 0, QTY: 1X30 MG TUBE, REFILL3
     Dates: start: 20110622
  19. AMIODARONE HCI - 200 MG ORAL TABLET [Concomitant]
     Dosage: TAKE I TABLET517DAYS; DAYS: 30; QTY: 90TABLETS, REFILLS 3. HOLD
     Dates: start: 20160118
  20. MONTELUKAST SODIUM 10 MG ORAL TABLET (SINGULAIR) [Concomitant]
     Dosage: TAKE I TABLET DAILY AS DIRECTED. DAYS: 90, QTY: 90TABLETS, REFILL: 3
     Dates: start: 20031212

REACTIONS (4)
  - Lip dry [Not Recovered/Not Resolved]
  - Dry mouth [Recovered/Resolved]
  - Insomnia [Unknown]
  - Dysphagia [Unknown]

NARRATIVE: CASE EVENT DATE: 20170204
